FAERS Safety Report 25596940 (Version 1)
Quarter: 2025Q3

REPORT INFORMATION
  Report Type: Spontaneous
  Country: US (occurrence: None)
  Receive Date: 20250722
  Receipt Date: 20250722
  Transmission Date: 20251020
  Serious: Yes (Hospitalization, Disabling, Other)
  Sender: FDA-CTU
  Company Number: None

PATIENT
  Age: 38 Year
  Sex: Male
  Weight: 101.25 kg

DRUGS (1)
  1. HUMIRA [Suspect]
     Active Substance: ADALIMUMAB
     Indication: Sarcoidosis
     Dates: start: 20220615

REACTIONS (6)
  - Tumour necrosis [None]
  - Drug level decreased [None]
  - Therapy change [None]
  - Therapy change [None]
  - Manufacturing product shipping issue [None]
  - Product storage error [None]

NARRATIVE: CASE EVENT DATE: 20250718
